FAERS Safety Report 13255708 (Version 1)
Quarter: 2017Q1

REPORT INFORMATION
  Report Type: Spontaneous
  Country: US (occurrence: US)
  Receive Date: 20170218
  Receipt Date: 20170218
  Transmission Date: 20170428
  Serious: Yes (Disabling)
  Sender: FDA-Public Use
  Company Number: None

PATIENT
  Age: 69 Year
  Sex: Male
  Weight: 85.95 kg

DRUGS (29)
  1. DILAUDID [Concomitant]
     Active Substance: HYDROMORPHONE HYDROCHLORIDE
  2. SPIRIVA [Concomitant]
     Active Substance: TIOTROPIUM BROMIDE MONOHYDRATE
  3. BENADRYL [Concomitant]
     Active Substance: DIPHENHYDRAMINE HYDROCHLORIDE
  4. CALM (MAGNESIUM POWDER) [Concomitant]
  5. STOOL SOFTENER [Concomitant]
  6. FLONASE [Concomitant]
     Active Substance: FLUTICASONE PROPIONATE
  7. VITAMIN B12 [Concomitant]
     Active Substance: CYANOCOBALAMIN
  8. AZELASTINE [Concomitant]
     Active Substance: AZELASTINE
  9. TRANSDERM SCOP [Suspect]
     Active Substance: SCOPOLAMINE
     Indication: NAUSEA
     Dosage: ?          QUANTITY:10 PATCH(ES);OTHER FREQUENCY:72 HRS;?
     Route: 062
     Dates: start: 20170210, end: 20170216
  10. TYLENOL [Concomitant]
     Active Substance: ACETAMINOPHEN
  11. EOMEGA ESSENTIAL OIL VITAMIN [Concomitant]
  12. PROBIOTICS [Concomitant]
     Active Substance: PROBIOTICS NOS
  13. MIRALAX [Concomitant]
     Active Substance: POLYETHYLENE GLYCOL 3350
  14. COQ10 [Concomitant]
     Active Substance: UBIDECARENONE
  15. FLOVENT HFA INHALER [Concomitant]
  16. MALOXICAM CREAM [Concomitant]
  17. CLONAPIN [Concomitant]
     Active Substance: CLONAZEPAM
  18. MAGNESIUM [Concomitant]
     Active Substance: MAGNESIUM
  19. TRANSDERM SCOP [Suspect]
     Active Substance: SCOPOLAMINE
     Indication: DIZZINESS
     Dosage: ?          QUANTITY:10 PATCH(ES);OTHER FREQUENCY:72 HRS;?
     Route: 062
     Dates: start: 20170210, end: 20170216
  20. OMEPRAZOLE. [Concomitant]
     Active Substance: OMEPRAZOLE
  21. MELATONIN [Concomitant]
     Active Substance: MELATONIN
  22. VITAMINE D [Concomitant]
  23. CARAFATE [Concomitant]
     Active Substance: SUCRALFATE
  24. TRANSDERM SCOP [Suspect]
     Active Substance: SCOPOLAMINE
     Indication: LABYRINTHITIS
     Dosage: ?          QUANTITY:10 PATCH(ES);OTHER FREQUENCY:72 HRS;?
     Route: 062
     Dates: start: 20170210, end: 20170216
  25. SINGULAIR [Concomitant]
     Active Substance: MONTELUKAST SODIUM
  26. RESTASIS [Concomitant]
     Active Substance: CYCLOSPORINE
  27. RAPAFLO [Concomitant]
     Active Substance: SILODOSIN
  28. MOTRIN [Concomitant]
     Active Substance: IBUPROFEN
  29. AFRIN [Concomitant]
     Active Substance: OXYMETAZOLINE

REACTIONS (9)
  - Withdrawal syndrome [None]
  - Therapy cessation [None]
  - Impaired work ability [None]
  - Dizziness [None]
  - Confusional state [None]
  - Nausea [None]
  - Somnolence [None]
  - Mental impairment [None]
  - Disorientation [None]

NARRATIVE: CASE EVENT DATE: 20170218
